FAERS Safety Report 13150423 (Version 6)
Quarter: 2017Q1

REPORT INFORMATION
  Report Type: Spontaneous
  Country: US (occurrence: US)
  Receive Date: 20170125
  Receipt Date: 20170328
  Transmission Date: 20170428
  Serious: No
  Sender: FDA-Public Use
  Company Number: US-PFIZER INC-2017004059

PATIENT
  Age: 10 Year
  Sex: Female
  Weight: 23.5 kg

DRUGS (10)
  1. GENOTROPIN [Suspect]
     Active Substance: SOMATROPIN
     Dosage: UNK
  2. GENOTROPIN [Suspect]
     Active Substance: SOMATROPIN
     Dosage: 1.2 MG, DAILY
     Route: 058
     Dates: start: 20161119
  3. BECLOMETHASONE [Concomitant]
     Active Substance: BECLOMETHASONE
     Dosage: UNK [2 PUFF INCREASE TO 4 PUFFS INHALED TWICE A DAY WHILE IN YELLOW]
  4. QVAR [Concomitant]
     Active Substance: BECLOMETHASONE DIPROPIONATE
     Indication: ASTHMA
     Dosage: 80 MG, 1X/DAY (TWO INHALATIONS ONCE DAILY)
     Route: 045
  5. PROAIR HFA [Concomitant]
     Active Substance: ALBUTEROL SULFATE
     Indication: WHEEZING
     Dosage: UNK UNK, AS NEEDED
  6. GENOTROPIN [Suspect]
     Active Substance: SOMATROPIN
     Indication: GROWTH RETARDATION
     Dosage: 1 MG, DAILY, 6 PER WEEK
     Route: 058
     Dates: start: 20161107
  7. MONTELUKAST [Concomitant]
     Active Substance: MONTELUKAST SODIUM
     Dosage: 5 MG, 1X/DAY [AT BEDTIME]
     Route: 048
  8. CLARITIN [Concomitant]
     Active Substance: LORATADINE
     Dosage: 10 MG, DAILY
     Route: 048
  9. GENOTROPIN [Suspect]
     Active Substance: SOMATROPIN
     Dosage: 1.2 MG, 1X/DAY (INJECTED)
     Dates: start: 2016
  10. SINGULAIR [Concomitant]
     Active Substance: MONTELUKAST SODIUM
     Indication: ASTHMA
     Dosage: 5 MG, 1X/DAY

REACTIONS (5)
  - Injection site pain [Unknown]
  - Drug dose omission [Unknown]
  - Headache [Unknown]
  - Product quality issue [Unknown]
  - Vomiting [Recovered/Resolved]
